FAERS Safety Report 4665935-3 (Version None)
Quarter: 2005Q2

REPORT INFORMATION
  Report Type: 
  Country: None (occurrence: None)
  Receive Date: 20050517
  Receipt Date: 20050517
  Transmission Date: 20051028
  Serious: Yes (Life-Threatening, Disabling)
  Sender: FDA-Public Use
  Company Number: None

PATIENT
  Sex: Female
  Weight: 68.0396 kg

DRUGS (4)
  1. EFFEXOR [Suspect]
     Indication: ANXIETY
     Dosage: 150MG  PER DAY ORAL
     Route: 048
     Dates: start: 20010315, end: 20050103
  2. EFFEXOR [Suspect]
     Indication: DEPRESSION
     Dosage: 150MG  PER DAY ORAL
     Route: 048
     Dates: start: 20010315, end: 20050103
  3. DIAZEPAM [Concomitant]
  4. REMERON [Concomitant]

REACTIONS (19)
  - CONDITION AGGRAVATED [None]
  - DEPRESSION [None]
  - DRUG TOXICITY [None]
  - DYSPNOEA [None]
  - ECONOMIC PROBLEM [None]
  - EMOTIONAL DISTRESS [None]
  - FALL [None]
  - FEELING ABNORMAL [None]
  - HYPOAESTHESIA [None]
  - IMPAIRED WORK ABILITY [None]
  - LOSS OF EMPLOYMENT [None]
  - MIGRAINE [None]
  - PAIN IN EXTREMITY [None]
  - PARAESTHESIA [None]
  - POOR PERIPHERAL CIRCULATION [None]
  - SCAR [None]
  - SKIN LESION [None]
  - SUICIDAL IDEATION [None]
  - SUICIDE ATTEMPT [None]
